FAERS Safety Report 7544150-X (Version None)
Quarter: 2011Q2

REPORT INFORMATION
  Report Type: 
  Country: None (occurrence: None)
  Receive Date: 20110613
  Receipt Date: 20060518
  Transmission Date: 20111010
  Serious: Yes (Hospitalization, Other)
  Sender: FDA-Public Use
  Company Number: PHHO2006BR05118

PATIENT
  Age: 83 Year
  Sex: Female

DRUGS (4)
  1. XALATAN [Concomitant]
     Indication: GLAUCOMA
  2. TIMOPTOL [Concomitant]
     Indication: GLAUCOMA
  3. DIOVAN HCT [Suspect]
     Indication: HYPERTENSION
     Dosage: 92.5 MG, DAILY
     Route: 048
  4. ALPHAGAN [Concomitant]
     Indication: GLAUCOMA

REACTIONS (8)
  - RIB FRACTURE [None]
  - MUSCULOSKELETAL CHEST PAIN [None]
  - DIABETES MELLITUS [None]
  - INSOMNIA [None]
  - FALL [None]
  - BLOOD PRESSURE ABNORMAL [None]
  - PAIN [None]
  - OEDEMA PERIPHERAL [None]
